FAERS Safety Report 10130927 (Version 1)
Quarter: 2014Q2

REPORT INFORMATION
  Report Type: Spontaneous
  Country: US (occurrence: US)
  Receive Date: 20140428
  Receipt Date: 20140428
  Transmission Date: 20141212
  Serious: Yes (Hospitalization)
  Sender: FDA-Public Use
  Company Number: US-TARO PHARMACEUTICALS U.S.A., INC-2014SUN00895

PATIENT
  Age: 78 Year
  Sex: Male

DRUGS (7)
  1. AMIODARONE [Suspect]
     Indication: ATRIAL FIBRILLATION
     Dosage: UNK
     Route: 065
  2. WARFARIN [Interacting]
     Indication: PRODUCT USED FOR UNKNOWN INDICATION
     Route: 065
  3. SIMVASTATIN [Concomitant]
  4. METOPROLOL [Concomitant]
  5. TAMSULOSIN [Concomitant]
  6. FINASTERIDE [Concomitant]
  7. ASPIRIN [Concomitant]

REACTIONS (4)
  - Myxoedema coma [Recovering/Resolving]
  - Drug interaction [Unknown]
  - Haemorrhage [Unknown]
  - International normalised ratio increased [Unknown]
